FAERS Safety Report 23998575 (Version 1)
Quarter: 2024Q2

REPORT INFORMATION
  Report Type: Report from Study
  Country: US (occurrence: US)
  Receive Date: 20240621
  Receipt Date: 20240621
  Transmission Date: 20240716
  Serious: Yes (Death)
  Sender: FDA-Public Use
  Company Number: US-ABBVIE-5810141

PATIENT
  Sex: Female

DRUGS (1)
  1. LUMIGAN [Suspect]
     Active Substance: BIMATOPROST
     Indication: Product used for unknown indication
     Dosage: SOLUTION, FORM STRENGTH: 0.1 MILLIGRAM/MILLILITERS, 1 DROP BOTH EYES DAILY
     Route: 047

REACTIONS (1)
  - Death [Fatal]
